FAERS Safety Report 9254379 (Version 1)
Quarter: 2013Q2

REPORT INFORMATION
  Report Type: Spontaneous
  Country: KR (occurrence: KR)
  Receive Date: 20130425
  Receipt Date: 20130425
  Transmission Date: 20140414
  Serious: Yes (Other)
  Sender: FDA-Public Use
  Company Number: KR-TEVA-399762ISR

PATIENT
  Age: 40 Year
  Sex: Male

DRUGS (5)
  1. DOXORUBICIN [Suspect]
     Indication: DIFFUSE LARGE B-CELL LYMPHOMA
     Dosage: 50 MG/M2 DAILY; DAY 1. ADMINISTERED AS PART OF R-CHOP. ADR ONSET AFTER 2 CYCLES.
     Route: 065
  2. RITUXIMAB [Suspect]
     Indication: DIFFUSE LARGE B-CELL LYMPHOMA
     Dosage: 375 MG/M2 DAILY; DAY 1. ADMINISTERED AS PART OF R-CHOP. ADR ONSET AFTER 2 CYCLES.
     Route: 065
  3. CYCLOPHOSPHAMIDE [Suspect]
     Indication: DIFFUSE LARGE B-CELL LYMPHOMA
     Dosage: 750 MG/M2 DAILY; DAY 1. ADMINISTERED AS PART OF R-CHOP. ADR ONSET AFTER 2 CYCLES.
     Route: 065
  4. VINCRISTINE [Suspect]
     Indication: DIFFUSE LARGE B-CELL LYMPHOMA
     Dosage: 2 MILLIGRAM DAILY; DAY 1. ADMINISTERED AS PART OF R-CHOP. ADR ONSET AFTER 2 CYCLES.
     Route: 065
  5. PREDNISOLONE [Suspect]
     Indication: DIFFUSE LARGE B-CELL LYMPHOMA
     Dosage: 100 MILLIGRAM DAILY; DAY 1 TO 5. ADMINISTERED AS PART OF R-CHOP. ADR ONSET AFTER 2 CYCLES.
     Route: 065

REACTIONS (1)
  - Pneumocystis jirovecii pneumonia [Unknown]
